FAERS Safety Report 4851995-3 (Version None)
Quarter: 2005Q4

REPORT INFORMATION
  Report Type: 
  Country: None (occurrence: None)
  Receive Date: 20051123
  Receipt Date: 20050914
  Transmission Date: 20060501
  Serious: Yes (Disabling)
  Sender: FDA-Public Use
  Company Number: 217014

PATIENT
  Age: 26 Year
  Sex: Male
  Weight: 124.7 kg

DRUGS (4)
  1. RAPTIVA [Suspect]
     Indication: PSORIASIS
     Dosage: 125 MG, 1/WEEK, SUBCUTANEOUS
     Route: 058
     Dates: start: 20050727, end: 20050817
  2. CELEBREX [Concomitant]
  3. VICODIN (ACETAMINOPHEN, HYDROCODONE BIARTRATE) [Concomitant]
  4. UVB PHOTOTHERAPY (PHOTOTHERAPY UVB) [Concomitant]

REACTIONS (5)
  - BACK PAIN [None]
  - CHILLS [None]
  - NAUSEA [None]
  - PAIN IN JAW [None]
  - PYREXIA [None]
